FAERS Safety Report 5727199-9 (Version None)
Quarter: 2008Q2

REPORT INFORMATION
  Report Type: 
  Country: None (occurrence: None)
  Receive Date: 20080501
  Receipt Date: 20070316
  Transmission Date: 20081010
  Serious: Yes (Other)
  Sender: FDA-Public Use
  Company Number: PHEH2007US00882

PATIENT
  Age: 73 Year
  Sex: Male
  Weight: 71.2 kg

DRUGS (7)
  1. LOTREL [Suspect]
     Indication: HYPERTENSION
     Dosage: 10/20 MG, QD, ORAL
     Route: 048
     Dates: start: 20060824, end: 20070117
  2. ATENOLOL [Concomitant]
  3. LEVOTHYROXINE SODIUM [Concomitant]
  4. POTASSIUM CHLORIDE [Concomitant]
  5. ASPIRIN [Concomitant]
  6. PRILOSEC [Concomitant]
  7. COMBIVENT /GFR/ (IPRATROPIUM BROMIDE, SALBUTAMOL SULFATE) [Concomitant]

REACTIONS (9)
  - ABDOMINAL DISTENSION [None]
  - ABDOMINAL PAIN UPPER [None]
  - CARDIAC FAILURE CONGESTIVE [None]
  - CONSTIPATION [None]
  - COUGH [None]
  - GOUT [None]
  - OEDEMA PERIPHERAL [None]
  - PITTING OEDEMA [None]
  - WHEEZING [None]
